FAERS Safety Report 19435638 (Version 1)
Quarter: 2021Q2

REPORT INFORMATION
  Report Type: Spontaneous
  Country: US (occurrence: US)
  Receive Date: 20210618
  Receipt Date: 20210618
  Transmission Date: 20210717
  Serious: No
  Sender: FDA-Public Use
  Company Number: US-GLAXOSMITHKLINE-USCH2021038654

PATIENT
  Age: 77 Year
  Sex: Female

DRUGS (1)
  1. ALLI [Suspect]
     Active Substance: ORLISTAT
     Indication: WEIGHT LOSS DIET
     Dosage: 1 DF, QD

REACTIONS (3)
  - Inappropriate schedule of product administration [Unknown]
  - Rectal discharge [Recovering/Resolving]
  - Flatulence [Recovering/Resolving]
